FAERS Safety Report 17064660 (Version 1)
Quarter: 2019Q4

REPORT INFORMATION
  Report Type: Spontaneous
  Country: US (occurrence: US)
  Receive Date: 20191122
  Receipt Date: 20191122
  Transmission Date: 20200122
  Serious: No
  Sender: FDA-Public Use
  Company Number: US-PFIZER INC-2019505829

PATIENT
  Age: 62 Year

DRUGS (1)
  1. ADVIL [Suspect]
     Active Substance: IBUPROFEN
     Indication: PAIN
     Dosage: UNK

REACTIONS (6)
  - Dizziness [Unknown]
  - Pyrexia [Unknown]
  - Asthenia [Unknown]
  - Heart rate increased [Recovered/Resolved]
  - Nausea [Unknown]
  - Fatigue [Unknown]
